FAERS Safety Report 10042286 (Version 3)
Quarter: 2014Q2

REPORT INFORMATION
  Report Type: Spontaneous
  Country: JP (occurrence: JP)
  Receive Date: 20140327
  Receipt Date: 20140428
  Transmission Date: 20141212
  Serious: Yes (Hospitalization, Other)
  Sender: FDA-Public Use
  Company Number: JP-ELI_LILLY_AND_COMPANY-JP201403008184

PATIENT
  Age: 58 Year
  Sex: Female
  Weight: 60 kg

DRUGS (1)
  1. GEMZAR [Suspect]
     Indication: GALLBLADDER CANCER
     Dosage: UNK
     Route: 042
     Dates: start: 201108, end: 20120301

REACTIONS (6)
  - Accelerated hypertension [Unknown]
  - Raynaud^s phenomenon [Unknown]
  - Haemolytic uraemic syndrome [Unknown]
  - Pleural effusion [Unknown]
  - Haemangioma of spleen [Unknown]
  - Interstitial lung disease [Unknown]
